FAERS Safety Report 4894304-6 (Version None)
Quarter: 2006Q1

REPORT INFORMATION
  Report Type: 
  Country: None (occurrence: None)
  Receive Date: 20060127
  Receipt Date: 20060113
  Transmission Date: 20060701
  Serious: Yes (Hospitalization)
  Sender: FDA-Public Use
  Company Number: US-MERCK-0601USA02740

PATIENT
  Age: 58 Year
  Sex: Female
  Weight: 114 kg

DRUGS (2)
  1. VASOTEC [Suspect]
     Route: 048
     Dates: end: 20010331
  2. MONOPRIL [Suspect]
     Route: 048
     Dates: end: 20010331

REACTIONS (3)
  - CEREBRAL ARTERY OCCLUSION [None]
  - LETHARGY [None]
  - RENAL FAILURE [None]
